FAERS Safety Report 6268502-3 (Version None)
Quarter: 2009Q3

REPORT INFORMATION
  Report Type: 
  Country: None (occurrence: None)
  Receive Date: 20090715
  Receipt Date: 20090710
  Transmission Date: 20100115
  Serious: Yes (Death)
  Sender: FDA-Public Use
  Company Number: IT-TEVA-201626ISR

PATIENT
  Sex: Male

DRUGS (2)
  1. CEFTRIAXONE [Suspect]
     Indication: ANTIBIOTIC PROPHYLAXIS
     Route: 042
     Dates: start: 20090706, end: 20090706
  2. CEFTRIAXONE [Concomitant]

REACTIONS (3)
  - BRONCHOSTENOSIS [None]
  - DYSPNOEA [None]
  - ERYTHEMA [None]
